FAERS Safety Report 4818398-9 (Version None)
Quarter: 2005Q4

REPORT INFORMATION
  Report Type: 
  Country: None (occurrence: None)
  Receive Date: 20051031
  Receipt Date: 20050601
  Transmission Date: 20060501
  Serious: Yes (Hospitalization)
  Sender: FDA-Public Use
  Company Number: STA-AE-05-MTX-009

PATIENT
  Age: 79 Year
  Sex: Female

DRUGS (7)
  1. RHEUMATREX [Suspect]
     Indication: RHEUMATOID ARTHRITIS
     Dosage: 4 MG - 1XW  - ORAL
     Route: 048
     Dates: start: 20031110, end: 20050315
  2. DICLOFENAC SODIUM [Concomitant]
  3. ORGAN LYSATE, STANDARDIZED [Concomitant]
  4. LIMAPROST [Concomitant]
  5. LEVOGLUTAMIDE/SODIUM GUALENATE [Concomitant]
  6. DIFENIDOL HYDROCHLORIDE [Concomitant]
  7. BETAHISTINE HYDROCHLORIDE [Concomitant]

REACTIONS (3)
  - ASTHMA [None]
  - BONE MARROW FAILURE [None]
  - PNEUMONIA [None]
